FAERS Safety Report 15256439 (Version 1)
Quarter: 2018Q3

REPORT INFORMATION
  Report Type: Spontaneous
  Country: US (occurrence: US)
  Receive Date: 20180808
  Receipt Date: 20180808
  Transmission Date: 20181010
  Serious: Yes (Hospitalization)
  Sender: FDA-Public Use
  Company Number: US-MYLANLABS-2018M1059767

PATIENT
  Age: 70 Year
  Sex: Male

DRUGS (1)
  1. ROPIVACAINE [Suspect]
     Active Substance: ROPIVACAINE
     Indication: LOCAL ANAESTHESIA
     Dosage: ROUTE: INTERSCALENE BLOCK
     Route: 050

REACTIONS (2)
  - Phrenic nerve paralysis [Recovered/Resolved]
  - Acute respiratory distress syndrome [Recovered/Resolved]
